FAERS Safety Report 9884943 (Version 1)
Quarter: 2014Q1

REPORT INFORMATION
  Report Type: Spontaneous
  Country: CH (occurrence: CH)
  Receive Date: 20140210
  Receipt Date: 20140210
  Transmission Date: 20141002
  Serious: Yes (Other)
  Sender: FDA-Public Use
  Company Number: CH-JNJFOC-20140203102

PATIENT
  Age: 87 Year
  Sex: Female

DRUGS (2)
  1. XARELTO [Suspect]
     Indication: CARDIOVASCULAR DISORDER
     Route: 048
  2. EYLEA [Suspect]
     Indication: AGE-RELATED MACULAR DEGENERATION
     Dosage: 2 MG/0.5 ML
     Route: 031
     Dates: start: 20131028, end: 20131028

REACTIONS (2)
  - Retinal haemorrhage [Not Recovered/Not Resolved]
  - Blindness [Not Recovered/Not Resolved]
